FAERS Safety Report 14635922 (Version 4)
Quarter: 2020Q4

REPORT INFORMATION
  Report Type: Spontaneous
  Country: US (occurrence: US)
  Receive Date: 20180314
  Receipt Date: 20201215
  Transmission Date: 20210113
  Serious: Yes (Other)
  Sender: FDA-Public Use
  Company Number: US-PFIZER INC-2018105326

PATIENT
  Age: 64 Year
  Sex: Female

DRUGS (3)
  1. IBRANCE [Suspect]
     Active Substance: PALBOCICLIB
     Dosage: 125 MG, CYCLIC (1 DAILY FOR 21 DAYS, 7 DAYS OFF)
     Dates: start: 20201113, end: 20201127
  2. IBRANCE [Suspect]
     Active Substance: PALBOCICLIB
     Indication: BREAST CANCER FEMALE
     Dosage: 125 MG, CYCLIC (1 DAILY FOR 21 DAYS, 7 DAYS OFF)
     Dates: start: 202010
  3. IBRANCE [Suspect]
     Active Substance: PALBOCICLIB
     Indication: BREAST CANCER FEMALE
     Dosage: 125 MG, CYCLIC, (1 DAILY FOR 21 DAYS, 7 DAYS OFF)

REACTIONS (14)
  - Pulmonary function test decreased [Unknown]
  - Neoplasm progression [Unknown]
  - Memory impairment [Unknown]
  - Psychiatric symptom [Unknown]
  - Vomiting [Unknown]
  - Loss of personal independence in daily activities [Recovered/Resolved]
  - Dyspnoea [Not Recovered/Not Resolved]
  - Depression [Unknown]
  - Thinking abnormal [Unknown]
  - Nail discolouration [Unknown]
  - Aggression [Unknown]
  - Cardiac disorder [Unknown]
  - Diarrhoea [Unknown]
  - Pyrexia [Unknown]

NARRATIVE: CASE EVENT DATE: 2019
